FAERS Safety Report 22521499 (Version 1)
Quarter: 2023Q2

REPORT INFORMATION
  Report Type: Report from Study
  Country: CA (occurrence: CA)
  Receive Date: 20230605
  Receipt Date: 20230605
  Transmission Date: 20230722
  Serious: Yes (Death)
  Sender: FDA-Public Use
  Company Number: CA-BEH-2023159531

PATIENT
  Age: 84 Year
  Sex: Male
  Weight: 100 kg

DRUGS (1)
  1. HIZENTRA [Suspect]
     Active Substance: HUMAN IMMUNOGLOBULIN G
     Indication: Primary immunodeficiency syndrome
     Dosage: UNK, QW
     Route: 065
     Dates: start: 20170928

REACTIONS (1)
  - Death [Fatal]

NARRATIVE: CASE EVENT DATE: 20220720
